FAERS Safety Report 23518595 (Version 1)
Quarter: 2024Q1

REPORT INFORMATION
  Report Type: Spontaneous
  Country: US (occurrence: US)
  Receive Date: 20240213
  Receipt Date: 20240213
  Transmission Date: 20240409
  Serious: Yes (Hospitalization, Other)
  Sender: FDA-Public Use
  Company Number: US-SUN PHARMACEUTICAL INDUSTRIES LTD-2024R1-430437

PATIENT
  Age: 15 Year
  Sex: Male

DRUGS (1)
  1. DEXAMETHASONE [Suspect]
     Active Substance: DEXAMETHASONE
     Indication: Pharyngeal abscess
     Route: 065

REACTIONS (4)
  - Condition aggravated [Unknown]
  - Encephalopathy [Unknown]
  - Dysarthria [Unknown]
  - Vision blurred [Unknown]
